FAERS Safety Report 6923239-X (Version None)
Quarter: 2010Q3

REPORT INFORMATION
  Report Type: 
  Country: None (occurrence: None)
  Receive Date: 20100813
  Receipt Date: 20100805
  Transmission Date: 20110219
  Serious: Yes (Death)
  Sender: FDA-Public Use
  Company Number: ZA-ROCHE-719269

PATIENT
  Sex: Female
  Weight: 94.8 kg

DRUGS (11)
  1. TRASTUZUMAB [Suspect]
     Dosage: FORM: INJECTION, LAST DOSE PRIOR TO SAE: 27 JULY 2010.
     Route: 058
     Dates: start: 20100727
  2. DOCETAXEL [Suspect]
     Dosage: FORM: INJECTION, LAST DOSE PRIOR TO SAE: 27 JULY 2010.
     Route: 042
     Dates: start: 20100727
  3. ATENOLOL [Concomitant]
     Dates: start: 20050101
  4. ALLOPURINOL [Concomitant]
     Dates: start: 20090601
  5. DEXAMETHASONE [Concomitant]
     Route: 048
     Dates: start: 20100726, end: 20100728
  6. DEXAMETHASONE [Concomitant]
     Route: 042
     Dates: start: 20100727, end: 20100727
  7. ONDANSETRON [Concomitant]
     Route: 042
     Dates: start: 20100727, end: 20100727
  8. ONDANSETRON [Concomitant]
     Route: 048
     Dates: start: 20100727, end: 20100729
  9. CYCLIZINE [Concomitant]
     Dosage: FREQUENCY: PRN
     Dates: start: 20100728
  10. SUCRALFATE [Concomitant]
     Dates: start: 20100727
  11. DOLOROL FORTE [Concomitant]
     Dosage: FRQUENCY: PRN
     Dates: start: 20100801

REACTIONS (1)
  - SUDDEN DEATH [None]
